FAERS Safety Report 23553648 (Version 3)
Quarter: 2024Q2

REPORT INFORMATION
  Report Type: Spontaneous
  Country: US (occurrence: US)
  Receive Date: 20240222
  Receipt Date: 20240408
  Transmission Date: 20240716
  Serious: Yes (Hospitalization)
  Sender: FDA-Public Use
  Company Number: US-Eisai-EC-2024-159724

PATIENT
  Age: 69 Year
  Sex: Female
  Weight: 84.3 kg

DRUGS (12)
  1. LENVIMA [Suspect]
     Active Substance: LENVATINIB
     Indication: Endometrial cancer
     Route: 048
     Dates: start: 20231121, end: 20231221
  2. KEYTRUDA [Suspect]
     Active Substance: PEMBROLIZUMAB
     Indication: Endometrial cancer
     Route: 042
     Dates: start: 20231121, end: 20231121
  3. ACETAMINOPHEN [Concomitant]
     Active Substance: ACETAMINOPHEN
     Indication: Pain
     Dosage: AS NEEDED.
     Route: 048
  4. ALBUTEROL SULFATE [Concomitant]
     Active Substance: ALBUTEROL SULFATE
     Indication: Wheezing
     Dosage: 1 PUFF INTO THE LUNGS EVERY 6 HOURS AS NEEDED.
     Route: 055
     Dates: start: 20221028
  5. ALBUTEROL SULFATE [Concomitant]
     Active Substance: ALBUTEROL SULFATE
     Indication: Dyspnoea
  6. ELIQUIS [Concomitant]
     Active Substance: APIXABAN
     Indication: Deep vein thrombosis
     Route: 048
  7. EPINEPHRINE [Concomitant]
     Active Substance: EPINEPHRINE
     Indication: Anaphylactic reaction
     Dosage: INJECT 0.3 ML (0.3 MG TOTAL) (1 PEN) INTRAMUSCULARLY AS NEEDED.
     Route: 030
     Dates: start: 20210607
  8. ADVAIR HFA [Concomitant]
     Active Substance: FLUTICASONE PROPIONATE\SALMETEROL XINAFOATE
     Indication: Product used for unknown indication
     Dosage: INHALE 1 PUFF INTO THE LUNGS 2 TIMES DAILY AS NEEDED.
     Route: 055
     Dates: start: 20221028
  9. NORCO [Concomitant]
     Active Substance: ACETAMINOPHEN\HYDROCODONE BITARTRATE
     Indication: Pain
     Dosage: HALF TO ONE TABLET BY MOUTH 2 TIMES A DAY AS NEEDED.
     Route: 048
     Dates: start: 20231205
  10. LEVOTHYROXINE [Concomitant]
     Active Substance: LEVOTHYROXINE\LEVOTHYROXINE SODIUM
     Indication: Hypothyroidism
     Dosage: EVERY MORNING BEFORE BREAKFAST.
     Route: 048
     Dates: start: 20230414, end: 20231221
  11. METFORMIN [Concomitant]
     Active Substance: METFORMIN HYDROCHLORIDE
     Indication: Type 2 diabetes mellitus
     Dosage: WITH BREAKFAST.
     Route: 048
     Dates: start: 20231114
  12. NYSTATIN [Concomitant]
     Active Substance: NYSTATIN
     Indication: Product used for unknown indication
     Dosage: APPLY 1 APPLICATION TOPICALLY 3 TIMES A DAY AS NEEDED TO SKIN UNDER BOTH BREASTS.
     Route: 061
     Dates: start: 20231218, end: 20240117

REACTIONS (5)
  - Atrial fibrillation [Recovered/Resolved]
  - Immune-mediated hepatitis [Recovered/Resolved]
  - Fatigue [Unknown]
  - Fall [Unknown]
  - Immune-mediated hyperthyroidism [Recovered/Resolved]

NARRATIVE: CASE EVENT DATE: 20231128
